FAERS Safety Report 10585152 (Version 2)
Quarter: 2015Q1

REPORT INFORMATION
  Report Type: Spontaneous
  Country: BR (occurrence: None)
  Receive Date: 20141113
  Receipt Date: 20150302
  Transmission Date: 20150720
  Serious: Yes (Hospitalization, Other)
  Sender: FDA-Public Use
  Company Number: BR2014GSK017885

PATIENT
  Age: 61 Year
  Sex: Male
  Weight: 53.1 kg

DRUGS (2)
  1. TIVICAY [Suspect]
     Active Substance: DOLUTEGRAVIR SODIUM
     Indication: HIV INFECTION
     Dates: start: 20141010
  2. GANCICLOVIR. [Concomitant]
     Active Substance: GANCICLOVIR

REACTIONS (9)
  - Blood creatine phosphokinase increased [None]
  - Cytomegalovirus chorioretinitis [None]
  - Rhabdomyolysis [None]
  - Pain in extremity [None]
  - Myalgia [None]
  - Visual acuity reduced [None]
  - HIV infection [None]
  - Hypersensitivity [None]
  - Infection reactivation [None]

NARRATIVE: CASE EVENT DATE: 20141027
